FAERS Safety Report 15698292 (Version 1)
Quarter: 2018Q4

REPORT INFORMATION
  Report Type: Spontaneous
  Country: US (occurrence: US)
  Receive Date: 20181206
  Receipt Date: 20181206
  Transmission Date: 20190205
  Serious: Yes (Other)
  Sender: FDA-Public Use
  Company Number: None

PATIENT
  Age: 51 Year
  Sex: Female
  Weight: 75.15 kg

DRUGS (1)
  1. DESVENLAFAXINE 100MG BROWN DIAMOND PILL WITH L190 [Suspect]
     Active Substance: DESVENLAFAXINE
     Indication: DEPRESSION
     Dosage: ?          QUANTITY:1 TABLET(S);?
     Route: 048
     Dates: start: 20181122, end: 20181202

REACTIONS (4)
  - Job dissatisfaction [None]
  - Suicidal ideation [None]
  - Depression [None]
  - Product complaint [None]

NARRATIVE: CASE EVENT DATE: 20181122
